FAERS Safety Report 5229661-4 (Version None)
Quarter: 2007Q1

REPORT INFORMATION
  Report Type: 
  Country: None (occurrence: None)
  Receive Date: 20070201
  Receipt Date: 20070116
  Transmission Date: 20070707
  Serious: Yes (Death)
  Sender: FDA-Public Use
  Company Number: MEDI-0005253

PATIENT
  Age: 15 Month
  Sex: Male

DRUGS (8)
  1. SYNAGIS [Suspect]
     Indication: ANTIVIRAL PROPHYLAXIS
     Dosage: INTRAMUSCULAR
     Route: 030
     Dates: start: 20051008, end: 20060207
  2. SYNAGIS [Suspect]
     Indication: BRONCHOPULMONARY DYSPLASIA
     Dosage: INTRAMUSCULAR
     Route: 030
     Dates: start: 20051008, end: 20060207
  3. SYNAGIS [Suspect]
     Indication: PREMATURE BABY
     Dosage: INTRAMUSCULAR
     Route: 030
     Dates: start: 20051008, end: 20060207
  4. SYNAGIS [Suspect]
     Indication: ANTIVIRAL PROPHYLAXIS
     Dosage: INTRAMUSCULAR
     Route: 030
     Dates: start: 20051008
  5. SYNAGIS [Suspect]
     Indication: BRONCHOPULMONARY DYSPLASIA
     Dosage: INTRAMUSCULAR
     Route: 030
     Dates: start: 20051008
  6. SYNAGIS [Suspect]
     Indication: PREMATURE BABY
     Dosage: INTRAMUSCULAR
     Route: 030
     Dates: start: 20051008
  7. FLUTICASONE PROPIONATE [Concomitant]
  8. SALMETEROL (SALMETEROL) [Concomitant]

REACTIONS (1)
  - SUDDEN DEATH [None]
